FAERS Safety Report 6013279-X (Version None)
Quarter: 2008Q4

REPORT INFORMATION
  Report Type: 
  Country: None (occurrence: None)
  Receive Date: 20081212
  Receipt Date: 20080813
  Transmission Date: 20090506
  Serious: Yes (Other)
  Sender: FDA-Public Use
  Company Number: 580961

PATIENT
  Age: 74 Year
  Sex: Female

DRUGS (2)
  1. VALIUM [Suspect]
     Indication: ANXIETY
  2. DIAZEPAM [Suspect]
     Indication: ANXIETY
     Dosage: 5 MG

REACTIONS (1)
  - MUSCLE SPASMS [None]
